FAERS Safety Report 16840460 (Version 1)
Quarter: 2019Q3

REPORT INFORMATION
  Report Type: Spontaneous
  Country: IT (occurrence: IT)
  Receive Date: 20190923
  Receipt Date: 20190923
  Transmission Date: 20191005
  Serious: Yes (Hospitalization)
  Sender: FDA-Public Use
  Company Number: PHHY2019IT217058

PATIENT
  Age: 79 Year
  Sex: Male

DRUGS (5)
  1. PREDNISONE. [Suspect]
     Active Substance: PREDNISONE
     Indication: MYASTHENIA GRAVIS
     Dosage: 7.5 MG, UNK
     Route: 065
  2. AZATHIOPRINE. [Suspect]
     Active Substance: AZATHIOPRINE
     Dosage: 75 MG, UNK
     Route: 065
  3. PYRIDOSTIGMINE [Suspect]
     Active Substance: PYRIDOSTIGMINE
     Indication: MYASTHENIA GRAVIS
     Dosage: UNK
     Route: 065
  4. PREDNISONE. [Suspect]
     Active Substance: PREDNISONE
     Dosage: 12.5 MG, UNK
     Route: 065
  5. AZATHIOPRINE. [Suspect]
     Active Substance: AZATHIOPRINE
     Indication: MYASTHENIA GRAVIS
     Dosage: 50 MG, UNK
     Route: 065

REACTIONS (18)
  - Ophthalmoplegia [Unknown]
  - Neuropathy peripheral [Recovering/Resolving]
  - Areflexia [Unknown]
  - Muscular weakness [Recovering/Resolving]
  - Nausea [Recovering/Resolving]
  - Product use in unapproved indication [Unknown]
  - Miller Fisher syndrome [Recovering/Resolving]
  - Vomiting [Recovering/Resolving]
  - Diplopia [Recovering/Resolving]
  - Ataxia [Recovering/Resolving]
  - Eyelid ptosis [Recovering/Resolving]
  - Gait disturbance [Recovered/Resolved]
  - Binocular eye movement disorder [Recovering/Resolving]
  - Nystagmus [Recovering/Resolving]
  - Paraesthesia [Recovering/Resolving]
  - Facial asymmetry [Unknown]
  - Balance disorder [Recovering/Resolving]
  - Dysarthria [Recovering/Resolving]
